FAERS Safety Report 7258719-3 (Version None)
Quarter: 2011Q1

REPORT INFORMATION
  Report Type: 
  Country: None (occurrence: None)
  Receive Date: 20110129
  Receipt Date: 20100518
  Transmission Date: 20110831
  Serious: No
  Sender: FDA-Public Use
  Company Number: US-ABBOTT-10P-163-0645510-00

PATIENT
  Age: 40 Year
  Sex: Female

DRUGS (8)
  1. KLONOPIN [Concomitant]
  2. PRILOSEC [Concomitant]
  3. POTASSIUM [Concomitant]
  4. TRAZODONE HCL [Concomitant]
  5. LASIX [Concomitant]
  6. HUMIRA [Suspect]
     Indication: PSORIASIS
  7. NEURONTIN [Concomitant]
  8. CELEXA [Concomitant]

REACTIONS (5)
  - INJECTION SITE SWELLING [None]
  - HYPOAESTHESIA [None]
  - INCORRECT DOSE ADMINISTERED [None]
  - WRONG TECHNIQUE IN DRUG USAGE PROCESS [None]
  - INJECTION SITE PAIN [None]
